FAERS Safety Report 7288640-6 (Version None)
Quarter: 2011Q1

REPORT INFORMATION
  Report Type: 
  Country: None (occurrence: None)
  Receive Date: 20110211
  Receipt Date: 20110209
  Transmission Date: 20110831
  Serious: Yes (Hospitalization, Other)
  Sender: FDA-Public Use
  Company Number: US-PFIZER INC-2011029610

PATIENT
  Sex: Male

DRUGS (3)
  1. ADVIL [Suspect]
     Indication: MUSCULOSKELETAL PAIN
  2. ADVIL [Suspect]
     Indication: ARTHRALGIA
  3. ADVIL [Suspect]
     Indication: PAIN IN EXTREMITY
     Dosage: UNK

REACTIONS (2)
  - JOINT RANGE OF MOTION DECREASED [None]
  - ASTHMA [None]
